FAERS Safety Report 8777956 (Version 1)
Quarter: 2012Q4

REPORT INFORMATION
  Report Type: 
  Country: PL (occurrence: PL)
  Receive Date: 20120912
  Receipt Date: 20120912
  Transmission Date: 20130627
  Serious: Yes (Hospitalization)
  Sender: FDA-Public Use
  Company Number: PHHY2012PL078390

PATIENT
  Age: 62 Year
  Sex: Male

DRUGS (6)
  1. TACROLIMUS [Suspect]
     Dosage: 3 mg, BID
     Route: 048
  2. EVEROLIMUS [Concomitant]
     Dosage: 2.25 mg, BID
  3. PREDNISONE [Concomitant]
     Dosage: 20 mg daily
  4. MYCOPHENOLATE MOFETIL [Concomitant]
     Indication: IMMUNOSUPPRESSION
     Dosage: 750 mg, BID
  5. VALGANCICLOVIR [Concomitant]
     Dosage: 450 mg, BID
  6. FRAXIPARINE [Concomitant]
     Dosage: 0.3 ml daily
     Route: 058

REACTIONS (4)
  - Status epilepticus [Recovered/Resolved]
  - Epilepsy [Recovered/Resolved]
  - Acidosis [Unknown]
  - Atrial fibrillation [Unknown]
